FAERS Safety Report 10267011 (Version 1)
Quarter: 2014Q2

REPORT INFORMATION
  Report Type: Spontaneous
  Country: CN (occurrence: CN)
  Receive Date: 20140630
  Receipt Date: 20140630
  Transmission Date: 20141212
  Serious: Yes (Other)
  Sender: FDA-Public Use
  Company Number: CN-BRISTOL-MYERS SQUIBB COMPANY-21099023

PATIENT
  Age: 64 Year
  Sex: Female

DRUGS (1)
  1. VELOSEF CAPS [Suspect]
     Route: 048
     Dates: start: 20130129, end: 20130129

REACTIONS (4)
  - Anaphylactic shock [Recovering/Resolving]
  - Dizziness [None]
  - Nausea [None]
  - Hyperhidrosis [None]
